FAERS Safety Report 7792309-9 (Version None)
Quarter: 2011Q4

REPORT INFORMATION
  Report Type: 
  Country: None (occurrence: None)
  Receive Date: 20111003
  Receipt Date: 20110919
  Transmission Date: 20120403
  Serious: Yes (Other)
  Sender: FDA-Public Use
  Company Number: PHHY2011BR73903

PATIENT
  Sex: Female
  Weight: 90 kg

DRUGS (7)
  1. VITAMIN B GROUP [Concomitant]
     Dosage: UNK UKN, UNK
  2. LOVAZA [Concomitant]
     Dosage: UNK UKN, UNK
  3. EXFORGE [Suspect]
     Indication: HYPERTENSION
     Dosage: 1 DF (320/10 MG), DAILY
     Route: 048
  4. ZINC [Concomitant]
     Dosage: UNK UKN, UNK
  5. ASCORBIC ACID [Concomitant]
     Dosage: UNK UKN, UNK
  6. EXFORGE [Suspect]
     Dosage: 1 DF (160/10 MG), DAILY
  7. CITONEURON [Concomitant]
     Dosage: UNK UKN, UNK

REACTIONS (2)
  - HYPOTENSION [None]
  - OBESITY [None]
